FAERS Safety Report 7927295-1 (Version None)
Quarter: 2011Q4

REPORT INFORMATION
  Report Type: 
  Country: None (occurrence: None)
  Receive Date: 20111118
  Receipt Date: 20111104
  Transmission Date: 20120403
  Serious: Yes (Other)
  Sender: FDA-Public Use
  Company Number: PHHY2011CA097667

PATIENT
  Sex: Female

DRUGS (3)
  1. VITAMIN B-12 [Concomitant]
  2. DESFERAL [Suspect]
  3. IRON [Concomitant]

REACTIONS (3)
  - PERNICIOUS ANAEMIA [None]
  - GASTRIC ULCER [None]
  - MALABSORPTION [None]
